FAERS Safety Report 9133124 (Version 3)
Quarter: 2013Q2

REPORT INFORMATION
  Report Type: Report from Study
  Country: AU (occurrence: AU)
  Receive Date: 20130301
  Receipt Date: 20130518
  Transmission Date: 20140414
  Serious: Yes (Death, Other)
  Sender: FDA-Public Use
  Company Number: AU-ROCHE-1185616

PATIENT
  Sex: 0

DRUGS (4)
  1. ZELBORAF [Suspect]
     Indication: MALIGNANT MELANOMA
     Route: 065
     Dates: start: 20130115, end: 20130226
  2. ZELBORAF [Suspect]
     Dosage: DOSE REDUCED
     Route: 065
  3. NEXIUM [Concomitant]
  4. DEXAMETHASONE [Concomitant]

REACTIONS (3)
  - Nervous system disorder [Fatal]
  - Skin toxicity [Unknown]
  - Rash pruritic [Unknown]
